FAERS Safety Report 9191557 (Version 2)
Quarter: 2013Q2

REPORT INFORMATION
  Report Type: Spontaneous
  Country: US (occurrence: US)
  Receive Date: 20130326
  Receipt Date: 20130404
  Transmission Date: 20140414
  Serious: No
  Sender: FDA-Public Use
  Company Number: US-TEVA-394677USA

PATIENT
  Age: 23 Year
  Sex: Female
  Weight: 56.75 kg

DRUGS (3)
  1. PLAN B ONE-STEP [Suspect]
     Indication: POST COITAL CONTRACEPTION
     Dosage: 1.5 MILLIGRAM DAILY;
     Route: 048
     Dates: start: 20130318, end: 20130318
  2. PRENATALS [Concomitant]
     Indication: SUPPLEMENTATION THERAPY
  3. BIOTIN [Concomitant]
     Indication: SUPPLEMENTATION THERAPY

REACTIONS (2)
  - Dysmenorrhoea [Recovered/Resolved]
  - Metrorrhagia [Recovered/Resolved]
